FAERS Safety Report 7213822-9 (Version None)
Quarter: 2011Q1

REPORT INFORMATION
  Report Type: 
  Country: None (occurrence: None)
  Receive Date: 20110106
  Receipt Date: 20101221
  Transmission Date: 20110831
  Serious: Yes (Other)
  Sender: FDA-Public Use
  Company Number: PHEH2009US08195

PATIENT
  Sex: Female
  Weight: 101 kg

DRUGS (11)
  1. EXJADE [Suspect]
     Dosage: 1000 MG, QD
     Route: 048
  2. METOPROLOL [Concomitant]
  3. DECADRON [Concomitant]
  4. FOLIC ACID [Concomitant]
  5. VITAMIN B COMPLEX CAP [Concomitant]
  6. EXJADE [Suspect]
     Dosage: 500 MG
  7. NEXIUM [Concomitant]
  8. CEROVITE [Concomitant]
  9. ALDACTONE [Concomitant]
  10. LEVOTHYROXINE [Concomitant]
  11. DULCOLAX [Concomitant]

REACTIONS (11)
  - CHRONIC LYMPHOCYTIC LEUKAEMIA [None]
  - NAUSEA [None]
  - RASH [None]
  - ARTHRALGIA [None]
  - DYSPNOEA [None]
  - LIVER FUNCTION TEST ABNORMAL [None]
  - FATIGUE [None]
  - PAIN IN EXTREMITY [None]
  - SLEEP DISORDER [None]
  - ANAEMIA HAEMOLYTIC AUTOIMMUNE [None]
  - ARTHROPATHY [None]
